FAERS Safety Report 19056880 (Version 1)
Quarter: 2021Q1

REPORT INFORMATION
  Report Type: Spontaneous
  Country: US (occurrence: US)
  Receive Date: 20210325
  Receipt Date: 20210325
  Transmission Date: 20210420
  Serious: Yes (Hospitalization)
  Sender: FDA-Public Use
  Company Number: None

PATIENT
  Age: 73 Year
  Sex: Male
  Weight: 72.35 kg

DRUGS (11)
  1. ENTYVIO [Suspect]
     Active Substance: VEDOLIZUMAB
  2. CENTRUM SILVER [Concomitant]
     Active Substance: MINERALS\VITAMINS
  3. DIFLUCAN [Concomitant]
     Active Substance: FLUCONAZOLE
  4. UCERIS [Concomitant]
     Active Substance: BUDESONIDE
  5. VITAMIN D3 [Concomitant]
     Active Substance: CHOLECALCIFEROL
  6. SPIRONOLACTONE. [Concomitant]
     Active Substance: SPIRONOLACTONE
  7. POTASSIUM [Concomitant]
     Active Substance: POTASSIUM
  8. LOMOTIL [Concomitant]
     Active Substance: ATROPINE SULFATE\DIPHENOXYLATE HYDROCHLORIDE
  9. GABAPENTIN. [Concomitant]
     Active Substance: GABAPENTIN
  10. CALCIUM [Concomitant]
     Active Substance: CALCIUM
  11. LIALDA [Concomitant]
     Active Substance: MESALAMINE

REACTIONS (6)
  - Infarction [None]
  - C-reactive protein increased [None]
  - Decreased appetite [None]
  - Flatulence [None]
  - Leukocytosis [None]
  - Diarrhoea [None]

NARRATIVE: CASE EVENT DATE: 20190412
